FAERS Safety Report 16120365 (Version 4)
Quarter: 2019Q3

REPORT INFORMATION
  Report Type: Report from Study
  Country: US (occurrence: US)
  Receive Date: 20190326
  Receipt Date: 20190729
  Transmission Date: 20191004
  Serious: Yes (Hospitalization, Other)
  Sender: FDA-Public Use
  Company Number: PHEH2019US012675

PATIENT
  Sex: Female

DRUGS (6)
  1. AIMOVIG [Suspect]
     Active Substance: ERENUMAB-AOOE
     Indication: PRODUCT USED FOR UNKNOWN INDICATION
     Dosage: UNK
     Route: 065
     Dates: start: 201906
  2. ZOFRAN [Suspect]
     Active Substance: ONDANSETRON HYDROCHLORIDE
     Indication: NAUSEA
     Dosage: UNK
     Route: 065
     Dates: end: 201809
  3. CARVEDILOL. [Concomitant]
     Active Substance: CARVEDILOL
     Route: 065
  4. FUROSEMIDE. [Concomitant]
     Active Substance: FUROSEMIDE
     Route: 065
  5. LISINOPRIL. [Concomitant]
     Active Substance: LISINOPRIL
     Indication: PRODUCT USED FOR UNKNOWN INDICATION
     Route: 065
  6. ENALAPRIL [Concomitant]
     Active Substance: ENALAPRIL
     Route: 065

REACTIONS (21)
  - Cough [Recovering/Resolving]
  - Migraine [Unknown]
  - Fluid retention [Unknown]
  - Asthenia [Unknown]
  - Oedema peripheral [Unknown]
  - Dyspnoea [Unknown]
  - Blood pressure increased [Unknown]
  - Therapeutic response delayed [Unknown]
  - Cardiac disorder [Unknown]
  - Cardiac failure [Unknown]
  - Pain [Unknown]
  - Swelling [Unknown]
  - Chest pain [Unknown]
  - Diabetes mellitus [Unknown]
  - Hypersomnia [Unknown]
  - Pulmonary oedema [Unknown]
  - Syncope [Unknown]
  - Malaise [Unknown]
  - Weight increased [Unknown]
  - Hiatus hernia [Unknown]
  - Concomitant disease aggravated [Unknown]

NARRATIVE: CASE EVENT DATE: 2017
